FAERS Safety Report 8412361-7 (Version None)
Quarter: 2012Q2

REPORT INFORMATION
  Report Type: 
  Country: None (occurrence: None)
  Receive Date: 20120605
  Receipt Date: 20120523
  Transmission Date: 20120825
  Serious: Yes (Other)
  Sender: FDA-Public Use
  Company Number: US-ELI_LILLY_AND_COMPANY-US201205001540

PATIENT
  Sex: Female

DRUGS (6)
  1. ZOLOFT [Concomitant]
     Dosage: 200 MG, UNK
  2. ZYPREXA [Suspect]
     Dosage: UNK, UNKNOWN
  3. EFFEXOR [Concomitant]
     Dosage: 225 MG, UNK
  4. ZYPREXA [Suspect]
     Dosage: 30 MG, UNK
  5. ABILIFY [Concomitant]
     Dosage: 15 MG, UNK
  6. PROVIGIL [Concomitant]

REACTIONS (7)
  - WEIGHT INCREASED [None]
  - DRUG INEFFECTIVE [None]
  - RENAL TRANSPLANT [None]
  - METABOLIC SYNDROME [None]
  - DIABETES MELLITUS [None]
  - OVERDOSE [None]
  - COMA [None]
